FAERS Safety Report 24020345 (Version 1)
Quarter: 2024Q2

REPORT INFORMATION
  Report Type: Spontaneous
  Country: US (occurrence: None)
  Receive Date: 20240627
  Receipt Date: 20240627
  Transmission Date: 20240716
  Serious: Yes (Life-Threatening, Other)
  Sender: FDA-Public Use
  Company Number: None

PATIENT
  Age: 43 Year
  Sex: Female
  Weight: 58.1 kg

DRUGS (1)
  1. FERRLECIT [Suspect]
     Active Substance: SODIUM FERRIC GLUCONATE COMPLEX
     Indication: Iron deficiency anaemia
     Dates: start: 20240610, end: 20240626

REACTIONS (9)
  - Joint stiffness [None]
  - Peripheral swelling [None]
  - Joint swelling [None]
  - Joint swelling [None]
  - Dizziness [None]
  - Somnolence [None]
  - Pallor [None]
  - Hypotension [None]
  - Feeling hot [None]

NARRATIVE: CASE EVENT DATE: 20240626
